FAERS Safety Report 5606510-3 (Version None)
Quarter: 2008Q1

REPORT INFORMATION
  Report Type: 
  Country: None (occurrence: None)
  Receive Date: 20080129
  Receipt Date: 20080122
  Transmission Date: 20080703
  Serious: Yes (Other)
  Sender: FDA-Public Use
  Company Number: A0706134A

PATIENT
  Sex: Female

DRUGS (1)
  1. VERAMYST [Suspect]
     Indication: COUGH
     Dosage: 4SPR TWICE PER DAY
     Route: 045

REACTIONS (3)
  - BACK PAIN [None]
  - CHOKING [None]
  - DRUG ADMINISTRATION ERROR [None]
